FAERS Safety Report 5055567-X (Version None)
Quarter: 2006Q3

REPORT INFORMATION
  Report Type: 
  Country: None (occurrence: None)
  Receive Date: 20060714
  Receipt Date: 20060706
  Transmission Date: 20061208
  Serious: Yes (Other)
  Sender: FDA-Public Use
  Company Number: 234253K06USA

PATIENT
  Age: 39 Year
  Sex: Female

DRUGS (1)
  1. REBIF [Suspect]
     Indication: MULTIPLE SCLEROSIS
     Dosage: 44 MCG,  3 IN 1 WEEKS, SUBCUTANEOUS
     Route: 058
     Dates: start: 20040614

REACTIONS (6)
  - DIABETES MELLITUS INSULIN-DEPENDENT [None]
  - FATIGUE [None]
  - FLUID RETENTION [None]
  - MUSCLE SPASMS [None]
  - NEUROPATHY [None]
  - PAIN [None]
